FAERS Safety Report 16099706 (Version 1)
Quarter: 2019Q1

REPORT INFORMATION
  Report Type: Spontaneous
  Country: GR (occurrence: GR)
  Receive Date: 20190321
  Receipt Date: 20190321
  Transmission Date: 20190418
  Serious: Yes (Other)
  Sender: FDA-Public Use
  Company Number: GR-PFIZER INC-2019116813

PATIENT
  Age: 20 Year
  Sex: Male

DRUGS (4)
  1. VENLAFAXINE HCL [Suspect]
     Active Substance: VENLAFAXINE HYDROCHLORIDE
     Indication: MAJOR DEPRESSION
     Dosage: UNK
  2. BIPERIDEN [Suspect]
     Active Substance: BIPERIDEN
     Indication: MAJOR DEPRESSION
     Dosage: UNK
  3. PALIPERIDONE. [Suspect]
     Active Substance: PALIPERIDONE
     Dosage: 9 MG, UNK
     Route: 048
  4. LORAZEPAM. [Suspect]
     Active Substance: LORAZEPAM
     Dosage: 2.5 MG, UNK (1/2X3)

REACTIONS (3)
  - Extrapyramidal disorder [Unknown]
  - Major depression [Recovering/Resolving]
  - Sexual dysfunction [Unknown]
